FAERS Safety Report 10760950 (Version 1)
Quarter: 2015Q1

REPORT INFORMATION
  Report Type: Spontaneous
  Country: US (occurrence: None)
  Receive Date: 20150203
  Receipt Date: 20150203
  Transmission Date: 20150721
  Serious: Yes (Disabling)
  Sender: FDA-Public Use
  Company Number: None

PATIENT
  Age: 78 Year
  Sex: Female
  Weight: 59.88 kg

DRUGS (1)
  1. AZITHROMYCIN [Suspect]
     Active Substance: AZITHROMYCIN ANHYDROUS
     Indication: PNEUMONIA
     Dosage: 2 FIRST DAY THEN 1X DAY TAKEN BY MOUTH
     Route: 048
     Dates: start: 20140116, end: 20140119

REACTIONS (8)
  - Hypokinesia [None]
  - Neuralgia [None]
  - Arthropathy [None]
  - Insomnia [None]
  - Arthralgia [None]
  - Neuropathy peripheral [None]
  - Pain in extremity [None]
  - Exostosis [None]

NARRATIVE: CASE EVENT DATE: 20140119
